FAERS Safety Report 14900538 (Version 1)
Quarter: 2018Q2

REPORT INFORMATION
  Report Type: Spontaneous
  Country: US (occurrence: US)
  Receive Date: 20180516
  Receipt Date: 20180516
  Transmission Date: 20180711
  Serious: Yes (Hospitalization)
  Sender: FDA-Public Use
  Company Number: US-PFIZER INC-2018196180

PATIENT
  Age: 84 Year
  Sex: Female
  Weight: 52 kg

DRUGS (6)
  1. OXYCODONE HYDROCHLORIDE. [Concomitant]
     Active Substance: OXYCODONE HYDROCHLORIDE
     Indication: PAIN
     Dosage: 12 HOUR
     Route: 048
  2. LASIX [Concomitant]
     Active Substance: FUROSEMIDE
     Indication: OEDEMA
     Dosage: 40 MG, 1X/DAY
     Route: 048
  3. XALKORI [Suspect]
     Active Substance: CRIZOTINIB
     Indication: METASTASES TO LUNG
     Dosage: 250 MG, 2X/DAY
     Route: 048
  4. POTASSIUM CHLORIDE. [Concomitant]
     Active Substance: POTASSIUM CHLORIDE
     Indication: HYPOKALAEMIA
     Dosage: 20 MEQ, 1X/DAY
     Route: 048
  5. COLACE [Concomitant]
     Active Substance: DOCUSATE SODIUM
  6. TOLTERODINE [Concomitant]
     Active Substance: TOLTERODINE
     Indication: HYPERTONIC BLADDER

REACTIONS (3)
  - Asthenia [Unknown]
  - Nausea [Unknown]
  - Vomiting [Unknown]
